FAERS Safety Report 8197630-0 (Version None)
Quarter: 2012Q1

REPORT INFORMATION
  Report Type: 
  Country: None (occurrence: None)
  Receive Date: 20120309
  Receipt Date: 20120301
  Transmission Date: 20120608
  Serious: Yes (Other)
  Sender: FDA-Public Use
  Company Number: DE-TEVA-325428GER

PATIENT
  Sex: Female

DRUGS (1)
  1. COPAXONE [Suspect]
     Dates: end: 20040101

REACTIONS (6)
  - SHOCK [None]
  - WRONG TECHNIQUE IN DRUG USAGE PROCESS [None]
  - INJECTION SITE ATROPHY [None]
  - INJECTION SITE NECROSIS [None]
  - INJECTION SITE REACTION [None]
  - INJECTION SITE SCAR [None]
